FAERS Safety Report 6812657-6 (Version None)
Quarter: 2010Q3

REPORT INFORMATION
  Report Type: 
  Country: None (occurrence: None)
  Receive Date: 20100701
  Receipt Date: 20100624
  Transmission Date: 20110219
  Serious: Yes (Hospitalization)
  Sender: FDA-Public Use
  Company Number: JP-ROCHE-699514

PATIENT
  Sex: Male
  Weight: 30 kg

DRUGS (4)
  1. ROCEPHIN [Suspect]
     Indication: INFECTION
     Route: 041
     Dates: start: 20090212, end: 20090217
  2. ROCEPHIN [Suspect]
     Route: 041
     Dates: start: 20090218, end: 20090218
  3. ROCEPHIN [Suspect]
     Route: 041
     Dates: start: 20090313, end: 20090318
  4. BFLUID [Concomitant]
     Route: 042
     Dates: start: 20090217, end: 20090220

REACTIONS (1)
  - BILE DUCT STONE [None]
